FAERS Safety Report 12663430 (Version 1)
Quarter: 2016Q3

REPORT INFORMATION
  Report Type: Spontaneous
  Country: DE (occurrence: DE)
  Receive Date: 20160818
  Receipt Date: 20160818
  Transmission Date: 20161109
  Serious: Yes (Other)
  Sender: FDA-Public Use
  Company Number: DE-ASTELLAS-2016US031488

PATIENT
  Age: 35 Year

DRUGS (2)
  1. AMBISOME [Suspect]
     Active Substance: AMPHOTERICIN B
     Route: 065
  2. AMBISOME [Suspect]
     Active Substance: AMPHOTERICIN B
     Indication: FUNGAL INFECTION
     Route: 065

REACTIONS (8)
  - Splenectomy [Unknown]
  - Abscess [Unknown]
  - Fungal test positive [Unknown]
  - Flank pain [Unknown]
  - Pleural effusion [Unknown]
  - Mucormycosis [Unknown]
  - Abdominal mass [Unknown]
  - Drug ineffective [Unknown]
